FAERS Safety Report 25460975 (Version 1)
Quarter: 2025Q2

REPORT INFORMATION
  Report Type: Spontaneous
  Country: US (occurrence: None)
  Receive Date: 20250618
  Receipt Date: 20250618
  Transmission Date: 20250716
  Serious: No
  Sender: FDA-CTU
  Company Number: None

PATIENT
  Age: 35 Year
  Sex: Male

DRUGS (3)
  1. HERBALS\MITRAGYNINE [Suspect]
     Active Substance: HERBALS\MITRAGYNINE
  2. TURPENTINE [Suspect]
     Active Substance: TURPENTINE
  3. TIANEPTINE [Suspect]
     Active Substance: TIANEPTINE

REACTIONS (3)
  - Drug dependence [None]
  - Drug withdrawal syndrome [None]
  - Acetonaemic vomiting [None]

NARRATIVE: CASE EVENT DATE: 20250611
